FAERS Safety Report 9084004 (Version 1)
Quarter: 2013Q1

REPORT INFORMATION
  Report Type: Report from Study
  Country: US (occurrence: US)
  Receive Date: 20130131
  Receipt Date: 20130131
  Transmission Date: 20140127
  Serious: No
  Sender: FDA-Public Use
  Company Number: US-ABBOTT-12P-163-0986444-00

PATIENT
  Age: 29 Year
  Sex: Female

DRUGS (10)
  1. HUMIRA [Suspect]
     Indication: ARTHRITIS
     Dates: start: 201209
  2. SYNTHROID [Concomitant]
     Indication: HYPOTHYROIDISM
     Dosage: 0.125MG DAILY
  3. TOPROL [Concomitant]
     Indication: BLOOD PRESSURE
     Dosage: 100MG DAILY
  4. TOPROL [Concomitant]
     Indication: SYNCOPE
  5. OMEPRAZOLE [Concomitant]
     Indication: GASTROOESOPHAGEAL REFLUX DISEASE
     Dosage: 40MG DAILY
  6. MINOCYCLINE [Concomitant]
     Indication: CYST
  7. CELEXA [Concomitant]
     Indication: DEPRESSION
     Dosage: 60MG DAILY
  8. METFORMIN [Concomitant]
     Indication: BLOOD GLUCOSE ABNORMAL
     Dosage: 500MG DAILY
  9. TRAZODONE [Concomitant]
     Indication: DEPRESSION
     Dosage: AT BEDTIME
  10. RISPERDAL [Concomitant]
     Indication: DEPRESSION
     Dosage: AT BEDTIME

REACTIONS (2)
  - Nipple exudate bloody [Recovered/Resolved]
  - Cyst [Recovered/Resolved]
